FAERS Safety Report 17267259 (Version 1)
Quarter: 2020Q1

REPORT INFORMATION
  Report Type: Spontaneous
  Country: US (occurrence: US)
  Receive Date: 20200114
  Receipt Date: 20200114
  Transmission Date: 20200409
  Serious: Yes (Other)
  Sender: FDA-Public Use
  Company Number: US-SA-2020SA007327

PATIENT
  Age: 81 Year
  Sex: Female

DRUGS (1)
  1. MULTAQ [Suspect]
     Active Substance: DRONEDARONE
     Indication: ATRIAL FIBRILLATION
     Dosage: 2 DF, QD
     Route: 065
     Dates: start: 201908, end: 20200102

REACTIONS (2)
  - Atrial fibrillation [Unknown]
  - Heart valve incompetence [Unknown]
